FAERS Safety Report 7356051-0 (Version None)
Quarter: 2011Q1

REPORT INFORMATION
  Report Type: 
  Country: None (occurrence: None)
  Receive Date: 20110316
  Receipt Date: 20110309
  Transmission Date: 20110831
  Serious: Yes (Other)
  Sender: FDA-Public Use
  Company Number: CA-ELI_LILLY_AND_COMPANY-CA201103003625

PATIENT
  Age: 61 Year
  Sex: Male

DRUGS (3)
  1. CELEBREX [Concomitant]
     Indication: PAIN
  2. PRADAXA [Concomitant]
     Indication: THROMBOSIS PROPHYLAXIS
     Dosage: 150 MG, 2/D
     Dates: start: 20110202, end: 20110205
  3. CYMBALTA [Suspect]
     Indication: PAIN

REACTIONS (2)
  - OFF LABEL USE [None]
  - PANCREATITIS ACUTE [None]
